FAERS Safety Report 24062096 (Version 1)
Quarter: 2024Q3

REPORT INFORMATION
  Report Type: Report from Study
  Country: CA (occurrence: CA)
  Receive Date: 20240708
  Receipt Date: 20240708
  Transmission Date: 20241017
  Serious: Yes (Death)
  Sender: BAYER
  Company Number: CA-BAYER-2024A098159

PATIENT
  Age: 81 Year
  Sex: Male

DRUGS (1)
  1. ADEMPAS [Suspect]
     Active Substance: RIOCIGUAT
     Indication: Pulmonary hypertension
     Dosage: 2.5 MG, TID
     Dates: start: 20160205

REACTIONS (1)
  - Death [Fatal]

NARRATIVE: CASE EVENT DATE: 20240705
